FAERS Safety Report 17781730 (Version 1)
Quarter: 2020Q2

REPORT INFORMATION
  Report Type: Report from Study
  Country: US (occurrence: US)
  Receive Date: 20200513
  Receipt Date: 20200513
  Transmission Date: 20200714
  Serious: No
  Sender: FDA-Public Use
  Company Number: US-ACADIA PHARMACEUTICALS INC.-ACA-2019-014962

PATIENT
  Sex: Male
  Weight: 63.05 kg

DRUGS (3)
  1. NUPLAZID [Suspect]
     Active Substance: PIMAVANSERIN TARTRATE
     Indication: HALLUCINATION
  2. NUPLAZID [Suspect]
     Active Substance: PIMAVANSERIN TARTRATE
     Indication: PARKINSON^S DISEASE PSYCHOSIS
     Dosage: 34 MILLIGRAM, QD
     Route: 048
  3. NUPLAZID [Suspect]
     Active Substance: PIMAVANSERIN TARTRATE
     Indication: DELUSION

REACTIONS (8)
  - Gait disturbance [Unknown]
  - Confusional state [Unknown]
  - Fatigue [Unknown]
  - Oedema peripheral [Unknown]
  - Drug ineffective [Unknown]
  - Constipation [Unknown]
  - Prescribed overdose [Unknown]
  - Hallucination [Not Recovered/Not Resolved]
